FAERS Safety Report 7777256-0 (Version None)
Quarter: 2011Q3

REPORT INFORMATION
  Report Type: 
  Country: None (occurrence: None)
  Receive Date: 20110926
  Receipt Date: 20110914
  Transmission Date: 20111222
  Serious: Yes (Hospitalization, Other)
  Sender: FDA-Public Use
  Company Number: PHFR2011GB03188

PATIENT
  Sex: Male

DRUGS (2)
  1. CLOZAPINE [Suspect]
     Indication: SCHIZOPHRENIA
     Dosage: 950 MG/DAY
     Route: 048
     Dates: start: 19900906
  2. AMISULPRIDE [Suspect]
     Dosage: 50 MG/DAY
     Route: 048

REACTIONS (2)
  - LUNG NEOPLASM MALIGNANT [None]
  - MICROCYTIC ANAEMIA [None]
